FAERS Safety Report 17267063 (Version 1)
Quarter: 2020Q1

REPORT INFORMATION
  Report Type: Spontaneous
  Country: US (occurrence: US)
  Receive Date: 20200114
  Receipt Date: 20200114
  Transmission Date: 20200409
  Serious: No
  Sender: FDA-Public Use
  Company Number: US-DEXPHARM-20190068

PATIENT
  Age: 18 Year
  Sex: Female
  Weight: 56.24 kg

DRUGS (3)
  1. ALBUTEROL. [Concomitant]
     Active Substance: ALBUTEROL
     Indication: ASTHMA
     Dosage: UNK, PRN
     Route: 055
  2. TYLENOL SINUS [Concomitant]
     Active Substance: ACETAMINOPHEN\DIPHENHYDRAMINE
     Indication: SEASONAL ALLERGY
     Dosage: UNK, PRN
     Route: 065
  3. OMEPRAZOLE DELAYED RELEASE TABLETS 20 MG [Suspect]
     Active Substance: OMEPRAZOLE
     Indication: GASTROOESOPHAGEAL REFLUX DISEASE
     Dosage: 20 MG, SINGLE
     Route: 048
     Dates: start: 20190125, end: 20190125

REACTIONS (5)
  - Dizziness [Not Recovered/Not Resolved]
  - Tremor [Recovering/Resolving]
  - Nausea [Recovering/Resolving]
  - Feeling cold [Not Recovered/Not Resolved]
  - Feeling hot [Not Recovered/Not Resolved]

NARRATIVE: CASE EVENT DATE: 20190125
